FAERS Safety Report 14179555 (Version 2)
Quarter: 2018Q1

REPORT INFORMATION
  Report Type: Spontaneous
  Country: HU (occurrence: HU)
  Receive Date: 20171110
  Receipt Date: 20180126
  Transmission Date: 20180508
  Serious: Yes (Death, Hospitalization, Other)
  Sender: FDA-Public Use
  Company Number: HU-AMGEN-HUNSP2017167282

PATIENT
  Age: 74 Year
  Sex: Male

DRUGS (8)
  1. 5-FU [Concomitant]
     Active Substance: FLUOROURACIL
     Indication: COLORECTAL ADENOCARCINOMA
     Dosage: UNK
     Dates: start: 20160225, end: 20160816
  2. 5-FU [Concomitant]
     Active Substance: FLUOROURACIL
     Indication: METASTASES TO LIVER
  3. IRINOTECAN [Concomitant]
     Active Substance: IRINOTECAN
     Indication: METASTASES TO LIVER
  4. VECTIBIX [Suspect]
     Active Substance: PANITUMUMAB
     Indication: COLORECTAL ADENOCARCINOMA
     Dosage: UNK
     Route: 065
     Dates: start: 20160225, end: 20160816
  5. FOLINIC ACID [Concomitant]
     Active Substance: LEUCOVORIN
     Indication: COLORECTAL ADENOCARCINOMA
     Dosage: UNK
     Dates: start: 20160225, end: 20160816
  6. FOLINIC ACID [Concomitant]
     Active Substance: LEUCOVORIN
     Indication: METASTASES TO LIVER
  7. IRINOTECAN [Concomitant]
     Active Substance: IRINOTECAN
     Indication: COLORECTAL ADENOCARCINOMA
     Dosage: UNK
     Dates: start: 20160225, end: 20160816
  8. VECTIBIX [Suspect]
     Active Substance: PANITUMUMAB
     Indication: METASTASES TO LIVER

REACTIONS (3)
  - Skin reaction [Unknown]
  - Pneumonia [Unknown]
  - Death [Fatal]

NARRATIVE: CASE EVENT DATE: 20170325
